FAERS Safety Report 19412600 (Version 3)
Quarter: 2021Q2

REPORT INFORMATION
  Report Type: Other
  Country: CA (occurrence: CA)
  Receive Date: 20210614
  Receipt Date: 20210621
  Transmission Date: 20210717
  Serious: Yes (Life-Threatening, Hospitalization)
  Sender: FDA-Public Use
  Company Number: CA-ROCHE-2845683

PATIENT
  Sex: Male
  Weight: 81.72 kg

DRUGS (3)
  1. MACROBID [Concomitant]
     Active Substance: NITROFURANTOIN\NITROFURANTOIN MONOHYDRATE
  2. OCREVUS [Suspect]
     Active Substance: OCRELIZUMAB
     Indication: RELAPSING-REMITTING MULTIPLE SCLEROSIS
     Dosage: 300 MG AT DAY 0 AND 14, THEN 600 MG EVERY 6 MONTH
     Route: 042
     Dates: start: 20201126
  3. COVID?19 VACCINE [Concomitant]
     Dosage: DOSE #1 ? 28/ APRIL ?DOSE #2 ? 28/AUG

REACTIONS (2)
  - Urinary tract infection [Unknown]
  - Sepsis [Recovered/Resolved]
